FAERS Safety Report 11051521 (Version 1)
Quarter: 2015Q2

REPORT INFORMATION
  Report Type: Spontaneous
  Country: US (occurrence: None)
  Receive Date: 20150420
  Receipt Date: 20150420
  Transmission Date: 20150821
  Serious: Yes (Hospitalization)
  Sender: FDA-Public Use
  Company Number: None

PATIENT
  Age: 62 Year
  Sex: Male
  Weight: 87 kg

DRUGS (1)
  1. PHENYTOIN. [Suspect]
     Active Substance: PHENYTOIN
     Indication: SEIZURE
     Dosage: 300 MG, AM, PO
     Route: 048
     Dates: start: 20101129, end: 20150412

REACTIONS (4)
  - Muscular weakness [None]
  - Product physical issue [None]
  - Intentional overdose [None]
  - Gait disturbance [None]

NARRATIVE: CASE EVENT DATE: 20150412
